FAERS Safety Report 5565141-4 (Version None)
Quarter: 2007Q4

REPORT INFORMATION
  Report Type: 
  Country: None (occurrence: None)
  Receive Date: 20071218
  Receipt Date: 20071212
  Transmission Date: 20080405
  Serious: No
  Sender: FDA-Public Use
  Company Number: DE-MERCK-0710DEU00138

PATIENT
  Age: 4 Year
  Sex: Male
  Weight: 17 kg

DRUGS (2)
  1. SINGULAIR [Suspect]
     Indication: BRONCHITIS CHRONIC
     Route: 048
     Dates: start: 20071005, end: 20071005
  2. [THERAPY UNSPECIFIED] [Concomitant]
     Route: 065

REACTIONS (2)
  - CIRCULATORY COLLAPSE [None]
  - OVERDOSE [None]
